FAERS Safety Report 21568109 (Version 1)
Quarter: 2022Q4

REPORT INFORMATION
  Report Type: Spontaneous
  Country: US (occurrence: US)
  Receive Date: 20221108
  Receipt Date: 20221108
  Transmission Date: 20230112
  Serious: No
  Sender: FDA-Public Use
  Company Number: US-TEVA-2022-US-2820498

PATIENT
  Age: 57 Year
  Sex: Male
  Weight: 77 kg

DRUGS (1)
  1. AMOXICILLIN [Suspect]
     Active Substance: AMOXICILLIN
     Indication: Product used for unknown indication
     Dosage: 2625 MILLIGRAM DAILY;
     Route: 065

REACTIONS (1)
  - Eczema [Unknown]
